FAERS Safety Report 7671792-3 (Version None)
Quarter: 2011Q3

REPORT INFORMATION
  Report Type: 
  Country: None (occurrence: None)
  Receive Date: 20110809
  Receipt Date: 20110725
  Transmission Date: 20111222
  Serious: Yes (Other)
  Sender: FDA-Public Use
  Company Number: US-WATSON-2011-11463

PATIENT
  Sex: Male

DRUGS (4)
  1. FENTANYL SANDOZ [Suspect]
     Indication: PAIN
     Dosage: 1 PATCH, Q72H
     Route: 062
     Dates: start: 20010101, end: 20101101
  2. FENTANYL-75 [Suspect]
     Dosage: UNK
     Dates: start: 20101201
  3. FENTANYL [Suspect]
     Indication: PAIN
     Dosage: 1 PATCH, Q72H
     Route: 062
     Dates: start: 20010101, end: 20101101
  4. FENTANYL-75 [Suspect]
     Indication: PAIN
     Dosage: 1 PATCH, Q72H
     Route: 062

REACTIONS (2)
  - DRUG INEFFECTIVE [None]
  - SUICIDAL IDEATION [None]
